FAERS Safety Report 23407067 (Version 2)
Quarter: 2024Q1

REPORT INFORMATION
  Report Type: Spontaneous
  Country: IT (occurrence: IT)
  Receive Date: 20240116
  Receipt Date: 20240122
  Transmission Date: 20240409
  Serious: Yes (Death, Other)
  Sender: FDA-Public Use
  Company Number: IT-GILEAD-2024-0658566

PATIENT
  Age: 52 Year
  Sex: Male

DRUGS (1)
  1. TECARTUS [Suspect]
     Active Substance: BREXUCABTAGENE AUTOLEUCEL
     Indication: Product used for unknown indication
     Dosage: UNK
     Route: 042
     Dates: start: 20220818, end: 20220818

REACTIONS (1)
  - Death [Fatal]

NARRATIVE: CASE EVENT DATE: 20231224
